FAERS Safety Report 22987270 (Version 2)
Quarter: 2023Q4

REPORT INFORMATION
  Report Type: Report from Study
  Country: US (occurrence: US)
  Receive Date: 20230926
  Receipt Date: 20231012
  Transmission Date: 20240110
  Serious: Yes (Other)
  Sender: FDA-Public Use
  Company Number: US-UCBSA-2023046322

PATIENT
  Age: 71 Year
  Sex: Male

DRUGS (1)
  1. LACOSAMIDE [Suspect]
     Active Substance: LACOSAMIDE
     Indication: Seizure
     Dosage: 200 MILLIGRAM, 2X/DAY (BID) (1 TAB)
     Dates: start: 2018

REACTIONS (1)
  - Leukaemia [Recovering/Resolving]

NARRATIVE: CASE EVENT DATE: 20230301
